FAERS Safety Report 20230040 (Version 1)
Quarter: 2021Q4

REPORT INFORMATION
  Report Type: Spontaneous
  Country: US (occurrence: US)
  Receive Date: 20211226
  Receipt Date: 20211226
  Transmission Date: 20220303
  Serious: Yes (Hospitalization)
  Sender: FDA-Public Use
  Company Number: US-JNJFOC-20211241423

PATIENT
  Sex: Male

DRUGS (1)
  1. STELARA [Suspect]
     Active Substance: USTEKINUMAB
     Indication: Product used for unknown indication
     Route: 065

REACTIONS (6)
  - Swelling face [Unknown]
  - Blister [Unknown]
  - Acne [Unknown]
  - Scab [Unknown]
  - Hair growth abnormal [Unknown]
  - Skin discolouration [Unknown]
